FAERS Safety Report 6868898-5 (Version None)
Quarter: 2010Q3

REPORT INFORMATION
  Report Type: 
  Country: None (occurrence: None)
  Receive Date: 20100721
  Receipt Date: 20100721
  Transmission Date: 20110219
  Serious: Yes (Hospitalization)
  Sender: FDA-Public Use
  Company Number: None

PATIENT
  Sex: Male
  Weight: 4.5 kg

DRUGS (11)
  1. CARBOPLATIN [Suspect]
     Dosage: 80 MG
  2. ETOPOSIDE [Suspect]
     Dosage: 51 MG
  3. G-CSF (FILGRASTIM, AMGEN) [Suspect]
     Dosage: 500 MCG
  4. DOPAMINE HCL [Concomitant]
  5. FLUCONAZOLE [Concomitant]
  6. HYDROCORISONE [Concomitant]
  7. VANCOMYCIN [Concomitant]
  8. AMPICILLIAN [Concomitant]
  9. ELECTROLYTE [Concomitant]
  10. BLOOD PRODUCTS [Concomitant]
  11. CEFEPIME [Concomitant]

REACTIONS (12)
  - AGITATION NEONATAL [None]
  - CONTINUOUS HAEMODIAFILTRATION [None]
  - ENTEROCOCCUS TEST POSITIVE [None]
  - FLUID OVERLOAD [None]
  - NEONATAL HYPOTENSION [None]
  - NEUTROPENIA NEONATAL [None]
  - OEDEMA NEONATAL [None]
  - PHARYNGEAL HAEMORRHAGE [None]
  - RENAL FAILURE NEONATAL [None]
  - SYSTEMIC INFLAMMATORY RESPONSE SYNDROME [None]
  - THROMBOCYTOPENIA NEONATAL [None]
  - VENOOCCLUSIVE LIVER DISEASE [None]
